FAERS Safety Report 23304774 (Version 2)
Quarter: 2024Q1

REPORT INFORMATION
  Report Type: Spontaneous
  Country: US (occurrence: US)
  Receive Date: 20231218
  Receipt Date: 20240319
  Transmission Date: 20240410
  Serious: No
  Sender: FDA-Public Use
  Company Number: US-VIIV HEALTHCARE LIMITED-US2023AMR174154

PATIENT
  Age: 47 Year
  Sex: Male
  Weight: 107 kg

DRUGS (4)
  1. CABOTEGRAVIR [Suspect]
     Active Substance: CABOTEGRAVIR
     Indication: Product used for unknown indication
     Dosage: 600 MG
     Route: 030
     Dates: start: 20230817, end: 20231113
  2. CABOTEGRAVIR [Suspect]
     Active Substance: CABOTEGRAVIR
  3. CABOTEGRAVIR [Suspect]
     Active Substance: CABOTEGRAVIR
  4. CABOTEGRAVIR [Suspect]
     Active Substance: CABOTEGRAVIR
     Indication: Product used for unknown indication
     Dosage: UNK
     Route: 030
     Dates: end: 20231113

REACTIONS (4)
  - Rash [Recovering/Resolving]
  - Hypersensitivity [Unknown]
  - Urticaria [Unknown]
  - Chest pain [Unknown]

NARRATIVE: CASE EVENT DATE: 20230914
